FAERS Safety Report 17608214 (Version 1)
Quarter: 2020Q1

REPORT INFORMATION
  Report Type: Report from Study
  Country: US (occurrence: US)
  Receive Date: 20200331
  Receipt Date: 20200331
  Transmission Date: 20200409
  Serious: Yes (Disabling, Other)
  Sender: FDA-Public Use
  Company Number: US-AGIOS-2003US01785

PATIENT

DRUGS (1)
  1. TIBSOVO [Suspect]
     Active Substance: IVOSIDENIB
     Indication: ACUTE MYELOID LEUKAEMIA
     Dosage: 250MG, 2 TABLETS (500MG) DAILY
     Route: 048
     Dates: start: 20200310

REACTIONS (4)
  - Hearing aid user [Unknown]
  - Pain in extremity [Unknown]
  - Haemoglobin decreased [Recovered/Resolved]
  - Diarrhoea [Unknown]
